FAERS Safety Report 19854482 (Version 3)
Quarter: 2021Q4

REPORT INFORMATION
  Report Type: Spontaneous
  Country: US (occurrence: US)
  Receive Date: 20210920
  Receipt Date: 20211016
  Transmission Date: 20220303
  Serious: No
  Sender: FDA-Public Use
  Company Number: US-JNJFOC-20210909175

PATIENT
  Age: 71 Year
  Sex: Male

DRUGS (3)
  1. PEPCID AC [Suspect]
     Active Substance: FAMOTIDINE
     Indication: Dyspepsia
     Dosage: ONE TABLET BEFORE BED AND SOMETIMES JUST PART OF A TABLET BEFORE BED
     Route: 048
     Dates: start: 20210105
  2. PEPCID AC [Suspect]
     Active Substance: FAMOTIDINE
     Dosage: ONE TABLET BEFORE BED AND SOMETIMES JUST PART OF A TABLET BEFORE BED
     Route: 065
     Dates: start: 2021
  3. PEPCID AC [Suspect]
     Active Substance: FAMOTIDINE
     Dosage: ONE TABLET BEFORE BED AND SOMETIMES JUST PART OF A TABLET BEFORE BED
     Route: 065
     Dates: start: 2021

REACTIONS (5)
  - Gastric disorder [Not Recovered/Not Resolved]
  - Feeling abnormal [Not Recovered/Not Resolved]
  - Nausea [Not Recovered/Not Resolved]
  - Wrong technique in product usage process [Unknown]
  - Drug ineffective [Unknown]

NARRATIVE: CASE EVENT DATE: 20210101
